FAERS Safety Report 15526726 (Version 4)
Quarter: 2021Q1

REPORT INFORMATION
  Report Type: Report from Study
  Country: US (occurrence: US)
  Receive Date: 20181018
  Receipt Date: 20210311
  Transmission Date: 20210419
  Serious: Yes (Other)
  Sender: FDA-Public Use
  Company Number: US-AMGEN-USASP2018143708

PATIENT
  Age: 70 Year
  Sex: Male

DRUGS (1)
  1. REPATHA [Suspect]
     Active Substance: EVOLOCUMAB
     Indication: HYPERCHOLESTEROLAEMIA
     Dosage: 140 MILLIGRAM, Q2WK
     Route: 058
     Dates: start: 201712

REACTIONS (4)
  - Arthralgia [Unknown]
  - Type 2 diabetes mellitus [Unknown]
  - Lipoprotein deficiency [Unknown]
  - Myalgia [Unknown]

NARRATIVE: CASE EVENT DATE: 2020
